FAERS Safety Report 22022536 (Version 1)
Quarter: 2023Q1

REPORT INFORMATION
  Report Type: Spontaneous
  Country: US (occurrence: US)
  Receive Date: 20230222
  Receipt Date: 20230222
  Transmission Date: 20230417
  Serious: No
  Sender: FDA-Public Use
  Company Number: US-UPSHER-SMITH LABORATORIES, LLC-2022USL00908

PATIENT
  Sex: Female

DRUGS (6)
  1. MOXIFLOXACIN [Suspect]
     Active Substance: MOXIFLOXACIN
     Indication: Ocular hyperaemia
     Dosage: 2 DROP (1 DROP IN EACH EYE), 3X/DAY
     Route: 047
     Dates: start: 202210, end: 202210
  2. MOXIFLOXACIN [Suspect]
     Active Substance: MOXIFLOXACIN
     Indication: Eye discharge
     Dosage: UNK, ON AND OFF
     Route: 047
     Dates: start: 202210, end: 2022
  3. MOXIFLOXACIN [Suspect]
     Active Substance: MOXIFLOXACIN
     Indication: Eyelid margin crusting
     Dosage: 6 DROP (3 DROPS IN EACH EYE) BETWEEN 4 PM TO 9 PM
     Route: 047
     Dates: start: 20221111, end: 20221111
  4. MOXIFLOXACIN [Suspect]
     Active Substance: MOXIFLOXACIN
     Dosage: 3 DOSES IN EACH EYE DURING DAY
     Route: 047
     Dates: start: 20221112, end: 20221112
  5. MOXIFLOXACIN [Suspect]
     Active Substance: MOXIFLOXACIN
     Dosage: 1 DOSE ONCE IN MORNING
     Dates: start: 20221113, end: 20221113
  6. UNSPECIFIED INGREDIENT [Concomitant]
     Active Substance: UNSPECIFIED INGREDIENT

REACTIONS (8)
  - Eye irritation [Not Recovered/Not Resolved]
  - Asthenopia [Not Recovered/Not Resolved]
  - Vision blurred [Not Recovered/Not Resolved]
  - Eyelid margin crusting [Not Recovered/Not Resolved]
  - Eye discharge [Not Recovered/Not Resolved]
  - Ocular discomfort [Not Recovered/Not Resolved]
  - Eye pain [Not Recovered/Not Resolved]
  - Intentional product misuse [Recovered/Resolved]

NARRATIVE: CASE EVENT DATE: 20221001
